FAERS Safety Report 16417414 (Version 1)
Quarter: 2019Q2

REPORT INFORMATION
  Report Type: Spontaneous
  Country: US (occurrence: US)
  Receive Date: 20190611
  Receipt Date: 20190611
  Transmission Date: 20190711
  Serious: No
  Sender: FDA-Public Use
  Company Number: US-GILEAD-2019-0412768

PATIENT
  Sex: Female

DRUGS (10)
  1. BENZONATATE. [Concomitant]
     Active Substance: BENZONATATE
     Dosage: UNKNOWN
  2. VITAMIN B COMPLEX [Concomitant]
     Active Substance: CYANOCOBALAMIN\DEXPANTHENOL\NIACINAMIDE\PYRIDOXINE HYDROCHLORIDE\RIBOFLAVIN 5^-PHOSPHATE SODIUM\THIAMINE HYDROCHLORIDE\VITAMIN B COMPLEX
     Dosage: UNKNOWN
  3. CELEBREX [Concomitant]
     Active Substance: CELECOXIB
     Dosage: UNKNOWN
  4. ESTRADIOL. [Concomitant]
     Active Substance: ESTRADIOL
     Dosage: UNKNOWN
  5. HARVONI [Suspect]
     Active Substance: LEDIPASVIR\SOFOSBUVIR
     Indication: CHRONIC HEPATITIS C
     Dosage: 1 DOSAGE FORM, QD
     Route: 048
     Dates: start: 20190516
  6. CALCIUM [Concomitant]
     Active Substance: CALCIUM
     Dosage: UNKNOWN
  7. LYSINE [Concomitant]
     Active Substance: LYSINE
     Dosage: UNKNOWN
  8. ATORVASTATIN CALCIUM. [Concomitant]
     Active Substance: ATORVASTATIN CALCIUM
     Dosage: UNKNOWN
  9. CALCIUM [Concomitant]
     Active Substance: CALCIUM
     Dosage: UNKNOWN
  10. VITAMIN D3 [Concomitant]
     Active Substance: CHOLECALCIFEROL
     Dosage: UNKNOWN

REACTIONS (2)
  - Feeling abnormal [Unknown]
  - Fatigue [Unknown]
